FAERS Safety Report 9188517 (Version 1)
Quarter: 2013Q1

REPORT INFORMATION
  Report Type: Spontaneous
  Country: PL (occurrence: PL)
  Receive Date: 20130325
  Receipt Date: 20130325
  Transmission Date: 20140127
  Serious: Yes (Hospitalization)
  Sender: FDA-Public Use
  Company Number: PL-ELI_LILLY_AND_COMPANY-PL201303005633

PATIENT
  Age: 49 Year
  Sex: Male
  Weight: 68 kg

DRUGS (6)
  1. ALIMTA [Suspect]
     Indication: LUNG NEOPLASM MALIGNANT
     Dosage: 920 MG, UNK
     Route: 042
     Dates: start: 20130211, end: 20130304
  2. ONDANSETRON [Concomitant]
     Dosage: UNK
     Route: 048
     Dates: start: 20130211, end: 20130305
  3. ONDANSETRON [Concomitant]
     Dosage: UNK
     Route: 042
     Dates: start: 20130211, end: 20130305
  4. DEXAMETHASONE [Concomitant]
     Dosage: UNK
     Route: 048
     Dates: start: 20130211, end: 20130312
  5. DEXAMETHASONE [Concomitant]
     Dosage: UNK
     Route: 042
     Dates: start: 20130211, end: 20130312
  6. CDDP [Concomitant]
     Dosage: 138 MG, UNK
     Route: 042
     Dates: start: 20130211, end: 20130304

REACTIONS (3)
  - Cholecystitis [Recovering/Resolving]
  - Skin lesion [Recovering/Resolving]
  - Skin hyperpigmentation [Unknown]
